FAERS Safety Report 25957944 (Version 3)
Quarter: 2025Q4

REPORT INFORMATION
  Report Type: Report from Study
  Country: US (occurrence: US)
  Receive Date: 20251024
  Receipt Date: 20251224
  Transmission Date: 20260118
  Serious: Yes (Other)
  Sender: PFIZER
  Company Number: US-PFIZER INC-PV202500125249

PATIENT
  Age: 77 Year
  Sex: Female

DRUGS (2)
  1. IBRANCE [Suspect]
     Active Substance: PALBOCICLIB
     Indication: Breast cancer female
     Dosage: 125 MG (AT NIGHT)
  2. IBRANCE [Suspect]
     Active Substance: PALBOCICLIB
     Dosage: 75 MG

REACTIONS (11)
  - Renal impairment [Unknown]
  - Dizziness [Unknown]
  - Anxiety [Unknown]
  - Nausea [Not Recovered/Not Resolved]
  - Stomatitis [Unknown]
  - Epistaxis [Unknown]
  - Pain [Unknown]
  - Diarrhoea [Unknown]
  - Arthralgia [Unknown]
  - Alopecia [Unknown]
  - Fatigue [Unknown]
